FAERS Safety Report 17359756 (Version 5)
Quarter: 2021Q1

REPORT INFORMATION
  Report Type: Spontaneous
  Country: US (occurrence: US)
  Receive Date: 20200203
  Receipt Date: 20210202
  Transmission Date: 20210419
  Serious: Yes (Other)
  Sender: FDA-Public Use
  Company Number: US-AMGEN-USASP2020014669

PATIENT
  Age: 65 Year
  Sex: Female

DRUGS (5)
  1. CORLANOR [Suspect]
     Active Substance: IVABRADINE HYDROCHLORIDE
     Indication: CARDIAC FAILURE
     Dosage: 5 MILLIGRAM, BID
     Route: 065
     Dates: start: 201510
  2. BUMETANIDE. [Concomitant]
     Active Substance: BUMETANIDE
     Dosage: UNK
  3. ELIQUIS [Suspect]
     Active Substance: APIXABAN
     Indication: ATRIAL FIBRILLATION
     Dosage: UNK
     Route: 065
  4. CORLANOR [Suspect]
     Active Substance: IVABRADINE HYDROCHLORIDE
     Indication: HEART RATE INCREASED
  5. CORLANOR [Suspect]
     Active Substance: IVABRADINE HYDROCHLORIDE
     Indication: TACHYCARDIA

REACTIONS (9)
  - Hand fracture [Unknown]
  - Atrial fibrillation [Recovering/Resolving]
  - Balance disorder [Recovering/Resolving]
  - Malaise [Unknown]
  - Walking aid user [Unknown]
  - Intentional product misuse [Unknown]
  - Feeling abnormal [Unknown]
  - Weight increased [Recovering/Resolving]
  - Pain [Recovering/Resolving]

NARRATIVE: CASE EVENT DATE: 20200127
